FAERS Safety Report 7789950-6 (Version None)
Quarter: 2011Q3

REPORT INFORMATION
  Report Type: 
  Country: None (occurrence: None)
  Receive Date: 20110930
  Receipt Date: 20100920
  Transmission Date: 20111222
  Serious: No
  Sender: FDA-Public Use
  Company Number: US-ASTRAZENECA-2009UW14051

PATIENT
  Age: 59 Year
  Sex: Female

DRUGS (1)
  1. ARIMIDEX [Suspect]
     Indication: BREAST CANCER
     Route: 048
     Dates: start: 20090501

REACTIONS (5)
  - ERYTHEMA [None]
  - ARTHRALGIA [None]
  - HOT FLUSH [None]
  - HYPERHIDROSIS [None]
  - MOOD ALTERED [None]
